FAERS Safety Report 7381421-4 (Version None)
Quarter: 2011Q1

REPORT INFORMATION
  Report Type: 
  Country: None (occurrence: None)
  Receive Date: 20110321
  Receipt Date: 20110310
  Transmission Date: 20110831
  Serious: Yes (Hospitalization)
  Sender: FDA-Public Use
  Company Number: 029099

PATIENT
  Sex: Male

DRUGS (8)
  1. SULFAMETHOXAZOLE AND TRIMETHOPRIM [Suspect]
     Indication: ESCHERICHIA URINARY TRACT INFECTION
     Dosage: (1 UNIT TWICE DAILY ORAL)
     Dates: start: 20101010, end: 20101018
  2. SPECIAFOLDINE [Concomitant]
  3. FOSINOPRIL SODIUM AND HYDROCHLOROTHIAZIDE [Concomitant]
  4. TEGRETOL [Concomitant]
  5. ELISOR [Concomitant]
  6. KEPPRA [Suspect]
     Indication: EPILEPSY
     Dosage: (500 MG BID ORAL)
     Route: 048
     Dates: start: 20100901, end: 20101019
  7. MOVICOL /01053601/ [Concomitant]
  8. MONOTILDIEM /00489701/ [Concomitant]

REACTIONS (6)
  - SOMNOLENCE [None]
  - ANAEMIA [None]
  - CLONUS [None]
  - URINARY TRACT INFECTION [None]
  - AGRANULOCYTOSIS [None]
  - HYPONATRAEMIA [None]
